FAERS Safety Report 17498287 (Version 1)
Quarter: 2020Q1

REPORT INFORMATION
  Report Type: Spontaneous
  Country: US (occurrence: US)
  Receive Date: 20200304
  Receipt Date: 20200304
  Transmission Date: 20200409
  Serious: Yes (Other)
  Sender: FDA-Public Use
  Company Number: US-BAUSCH-BL-2020-006601

PATIENT
  Sex: Female

DRUGS (1)
  1. WELLBUTRIN XL [Suspect]
     Active Substance: BUPROPION HYDROCHLORIDE
     Indication: PRODUCT USED FOR UNKNOWN INDICATION
     Dosage: OVERDOSED ON WELLBUTRIN
     Route: 065

REACTIONS (4)
  - Ill-defined disorder [Unknown]
  - Overdose [Unknown]
  - Loss of consciousness [Unknown]
  - Respiratory arrest [Unknown]
